FAERS Safety Report 4879771-6 (Version None)
Quarter: 2006Q1

REPORT INFORMATION
  Report Type: 
  Country: None (occurrence: None)
  Receive Date: 20060113
  Receipt Date: 20050401
  Transmission Date: 20060701
  Serious: Yes (Hospitalization)
  Sender: FDA-Public Use
  Company Number: FR-GLAXOSMITHKLINE-B0376585A

PATIENT
  Age: 35 Year
  Sex: Female

DRUGS (19)
  1. AUGMENTIN '125' [Suspect]
     Route: 048
     Dates: start: 20040219, end: 20040229
  2. AMOXICILLIN [Suspect]
     Route: 048
     Dates: start: 20040212, end: 20040218
  3. DIHYDAN [Suspect]
     Indication: EPILEPSY
     Dosage: 300MG PER DAY
     Route: 048
     Dates: start: 20040113, end: 20040324
  4. FLIXOTIDE [Concomitant]
     Route: 055
     Dates: start: 20040215, end: 20040219
  5. EXOMUC [Concomitant]
     Route: 048
     Dates: start: 20040215, end: 20040304
  6. LEVOTHYROXINE SODIUM [Concomitant]
     Dosage: 100MCG PER DAY
     Route: 048
     Dates: end: 20040327
  7. XANAX [Concomitant]
     Dosage: .25MG PER DAY
     Route: 048
  8. BRONCHOKOD [Concomitant]
     Dosage: 1TBS TWICE PER DAY
     Route: 048
     Dates: start: 20040208, end: 20040214
  9. PULMICORT [Concomitant]
     Route: 055
     Dates: start: 20040219, end: 20040310
  10. TIORFAN [Concomitant]
     Route: 048
     Dates: start: 20040215, end: 20040219
  11. HYDROCORTISONE [Concomitant]
     Dosage: 30MG PER DAY
     Route: 048
     Dates: start: 20040101
  12. NEO-MERCAZOLE TAB [Concomitant]
     Dosage: 30MG PER DAY
     Route: 048
     Dates: start: 20031001, end: 20040327
  13. FLUDROCORTISONE [Concomitant]
     Route: 048
     Dates: start: 20040101
  14. DIFFU K [Concomitant]
     Route: 065
  15. PYOSTACINE [Concomitant]
     Route: 065
  16. TAVANIC [Concomitant]
     Dates: end: 20040301
  17. MOPRAL [Concomitant]
     Dates: end: 20040301
  18. TRIFLUCAN [Concomitant]
     Dates: end: 20040301
  19. CETIRIZINE HCL [Concomitant]
     Dates: end: 20040301

REACTIONS (20)
  - ACUTE GENERALISED EXANTHEMATOUS PUSTULOSIS [None]
  - ANGIONEUROTIC OEDEMA [None]
  - BLOOD ALKALINE PHOSPHATASE INCREASED [None]
  - BLOOD CREATININE INCREASED [None]
  - CHOLESTASIS [None]
  - EOSINOPHILIA [None]
  - ERYTHEMA [None]
  - FACE OEDEMA [None]
  - HYPERSENSITIVITY [None]
  - LEUKOCYTOCLASTIC VASCULITIS [None]
  - NEUTROPHILIA [None]
  - OEDEMA PERIPHERAL [None]
  - PYREXIA [None]
  - RASH PRURITIC [None]
  - RENAL FAILURE [None]
  - SKIN EXFOLIATION [None]
  - SKIN TEST POSITIVE [None]
  - TONGUE OEDEMA [None]
  - TOXIC SKIN ERUPTION [None]
  - TRANSAMINASES INCREASED [None]
